FAERS Safety Report 8986427 (Version 1)
Quarter: 2012Q4

REPORT INFORMATION
  Report Type: Spontaneous
  Country: TR (occurrence: None)
  Receive Date: 20121217
  Receipt Date: 20121217
  Transmission Date: 20130627
  Serious: Yes (Hospitalization)
  Sender: FDA-Public Use
  Company Number: PD 172

PATIENT
  Age: 62 Year
  Sex: Male

DRUGS (2)
  1. PSEUDOEPHEDRINE [Suspect]
     Indication: COMMON COLD
     Route: 048
  2. ACETAMINOPHEN, DEXTROMETHORPHAN HBR [Concomitant]

REACTIONS (5)
  - Palpitations [None]
  - Presyncope [None]
  - Confusional state [None]
  - Anxiety [None]
  - Heart rate increased [None]
